FAERS Safety Report 9458642 (Version 1)
Quarter: 2013Q3

REPORT INFORMATION
  Report Type: Spontaneous
  Country: DE (occurrence: DE)
  Receive Date: 20130814
  Receipt Date: 20130814
  Transmission Date: 20140515
  Serious: Yes (Hospitalization, Other)
  Sender: FDA-Public Use
  Company Number: DE-ABBOTT-13P-062-1077318-00

PATIENT
  Age: 33 Year
  Sex: Male
  Weight: 69.5 kg

DRUGS (2)
  1. HUMIRA [Suspect]
     Indication: CROHN^S DISEASE
     Route: 058
     Dates: start: 201007, end: 201304
  2. SALOFALK [Concomitant]
     Indication: CROHN^S DISEASE
     Route: 048

REACTIONS (13)
  - General physical health deterioration [Recovering/Resolving]
  - Disseminated tuberculosis [Recovering/Resolving]
  - Haemoptysis [Unknown]
  - Pyrexia [Unknown]
  - Dehydration [Unknown]
  - Dyspnoea [Unknown]
  - Sepsis [Recovering/Resolving]
  - Mycobacterium test positive [Unknown]
  - Liver function test abnormal [Unknown]
  - Pyrexia [Unknown]
  - Weight decreased [Unknown]
  - Diarrhoea [Recovering/Resolving]
  - Abdominal abscess [Unknown]
